FAERS Safety Report 10036189 (Version 2)
Quarter: 2014Q2

REPORT INFORMATION
  Report Type: Report from Study
  Country: CA (occurrence: CA)
  Receive Date: 20140325
  Receipt Date: 20140424
  Transmission Date: 20141212
  Serious: Yes (Life-Threatening, Hospitalization, Other)
  Sender: FDA-Public Use
  Company Number: CA-ABBVIE-14P-028-1215358-00

PATIENT
  Age: 63 Year
  Sex: Male
  Weight: 98 kg

DRUGS (4)
  1. HUMIRA [Suspect]
     Indication: PSORIASIS
     Route: 058
     Dates: end: 201312
  2. ZOLOFT [Suspect]
     Indication: ANXIETY
     Route: 048
     Dates: start: 2006, end: 201312
  3. ZOLOFT [Suspect]
     Indication: DEPRESSION
     Route: 048
     Dates: start: 201312
  4. DILAUDID [Concomitant]
     Indication: PRODUCT USED FOR UNKNOWN INDICATION
     Dosage: EVERY 4-6 HOURS
     Route: 048

REACTIONS (27)
  - Convulsion [Unknown]
  - Immune system disorder [Unknown]
  - Meningitis [Unknown]
  - Serotonin syndrome [Recovered/Resolved]
  - Clostridium difficile colitis [Recovered/Resolved]
  - Hypoxia [Recovered/Resolved]
  - Hypotension [Recovered/Resolved]
  - Muscle twitching [Recovered/Resolved]
  - Agitation [Recovered/Resolved]
  - Confusional state [Recovered/Resolved]
  - Distractibility [Recovered/Resolved]
  - Dyskinesia [Recovered/Resolved]
  - Photophobia [Recovered/Resolved]
  - Headache [Recovered/Resolved]
  - Diplopia [Recovered/Resolved]
  - Balance disorder [Recovered/Resolved]
  - White blood cell count increased [Unknown]
  - Viral infection [Unknown]
  - Microangiopathy [Unknown]
  - Psoriasis [Unknown]
  - Psoriasis [Unknown]
  - Angiopathy [Unknown]
  - Pulmonary mass [Unknown]
  - Cardiac murmur [Unknown]
  - Blood potassium decreased [Unknown]
  - Respiratory distress [Recovered/Resolved]
  - Gastroenteritis viral [Recovered/Resolved]
